FAERS Safety Report 6704914-9 (Version None)
Quarter: 2010Q2

REPORT INFORMATION
  Report Type: 
  Country: None (occurrence: None)
  Receive Date: 20100430
  Receipt Date: 20100106
  Transmission Date: 20101027
  Serious: No
  Sender: FDA-Public Use
  Company Number: US-ASTRAZENECA-2010SE00496

PATIENT
  Age: 66 Year
  Sex: Male
  Weight: 68 kg

DRUGS (4)
  1. NEXIUM [Suspect]
     Indication: REFLUX LARYNGITIS
     Route: 048
     Dates: start: 20091201
  2. NEXIUM [Suspect]
     Route: 048
  3. ATENOLOL [Concomitant]
  4. LIPITOR [Concomitant]

REACTIONS (3)
  - BLOOD GLUCOSE INCREASED [None]
  - DIZZINESS [None]
  - HEADACHE [None]
